FAERS Safety Report 15076611 (Version 2)
Quarter: 2018Q3

REPORT INFORMATION
  Report Type: Spontaneous
  Country: BR (occurrence: BR)
  Receive Date: 20180627
  Receipt Date: 20180716
  Transmission Date: 20181010
  Serious: Yes (Death, Hospitalization, Disabling)
  Sender: FDA-Public Use
  Company Number: BR-PFIZER INC-2018219873

PATIENT
  Age: 64 Year
  Sex: Male
  Weight: 56 kg

DRUGS (6)
  1. SUTENT [Suspect]
     Active Substance: SUNITINIB MALATE
     Indication: RENAL CANCER STAGE IV
     Dosage: 50 MG, DAILY (TWO TABLETS OF 25MG)
     Dates: start: 20180529, end: 20180611
  2. MORPHINE [Concomitant]
     Active Substance: MORPHINE
     Dosage: UNK UNK, EVERY 4 HRS
  3. LOSARTAN. [Concomitant]
     Active Substance: LOSARTAN
     Indication: HYPERTENSION
     Dosage: UNK
  4. SUTENT [Suspect]
     Active Substance: SUNITINIB MALATE
     Dosage: 50 MG, DAILY (1 TABLET OF 50 MG PER DAY)
     Dates: start: 20180612, end: 20180615
  5. OMEPRAZOLE. [Concomitant]
     Active Substance: OMEPRAZOLE
     Dosage: UNK
  6. GABAPENTIN. [Concomitant]
     Active Substance: GABAPENTIN
     Dosage: UNK

REACTIONS (10)
  - Anxiety [Recovered/Resolved]
  - Nausea [Recovered/Resolved]
  - Platelet count decreased [Fatal]
  - Diplopia [Recovering/Resolving]
  - Asthenia [Recovered/Resolved]
  - Confusional state [Unknown]
  - Vomiting [Recovered/Resolved]
  - Loss of personal independence in daily activities [Not Recovered/Not Resolved]
  - Intentional product misuse [Recovered/Resolved]
  - Vision blurred [Recovering/Resolving]

NARRATIVE: CASE EVENT DATE: 2018
